FAERS Safety Report 4727520-4 (Version None)
Quarter: 2005Q3

REPORT INFORMATION
  Report Type: 
  Country: None (occurrence: None)
  Receive Date: 20050727
  Receipt Date: 20050727
  Transmission Date: 20060218
  Serious: Yes (Other)
  Sender: FDA-Public Use
  Company Number: None

PATIENT
  Age: 73 Year
  Sex: Male

DRUGS (5)
  1. METOPROLOL 25MG [Suspect]
     Dosage: 1 BID
     Dates: start: 20040604
  2. ALTACE [Concomitant]
  3. AMARYL [Concomitant]
  4. PLAVIX [Concomitant]
  5. PLETAL [Concomitant]

REACTIONS (2)
  - BLOOD PRESSURE INCREASED [None]
  - PHARMACEUTICAL PRODUCT COMPLAINT [None]
